FAERS Safety Report 9288458 (Version 1)
Quarter: 2013Q2

REPORT INFORMATION
  Report Type: Spontaneous
  Country: GB (occurrence: None)
  Receive Date: 20130509
  Receipt Date: 20130509
  Transmission Date: 20140414
  Serious: Yes (Hospitalization)
  Sender: FDA-Public Use
  Company Number: AUR-APL-2013-03694

PATIENT
  Age: 43 Year
  Sex: Female

DRUGS (2)
  1. AMOXICILLIN (AMOXICILLIN) [Suspect]
     Indication: PRODUCT USED FOR UNKNOWN INDICATION
     Dosage: STOPPED?ROUTE   ORAL
  2. VENTOLIN (SALBUTAMOL) [Concomitant]

REACTIONS (5)
  - Anaphylactic reaction [None]
  - Rash [None]
  - Dyspnoea [None]
  - Lip swelling [None]
  - Pruritus [None]
